FAERS Safety Report 9449584 (Version 2)
Quarter: 2013Q3

REPORT INFORMATION
  Report Type: Report from Study
  Country: US (occurrence: US)
  Receive Date: 20130809
  Receipt Date: 20130927
  Transmission Date: 20140515
  Serious: Yes (Hospitalization)
  Sender: FDA-Public Use
  Company Number: US-SHIRE-ALL1-2013-05351

PATIENT
  Age: 4 Year
  Sex: Male
  Weight: 17.1 kg

DRUGS (3)
  1. IDURSULFASE [Suspect]
     Indication: MUCOPOLYSACCHARIDOSIS II
     Dosage: UNK, UNKNOWN
     Route: 041
     Dates: start: 20091014
  2. LORATADINE [Concomitant]
     Indication: PREMEDICATION
     Dosage: 5 MG, 1X/WEEK
     Route: 048
     Dates: start: 20091203
  3. PARACETAMOL [Concomitant]
     Indication: PREMEDICATION
     Dosage: 240 MG, 1X/WEEK
     Route: 048
     Dates: start: 20091203

REACTIONS (4)
  - Respiratory syncytial virus infection [Unknown]
  - Hypoxia [Unknown]
  - Cough [Unknown]
  - Pneumonia [Recovered/Resolved]
